FAERS Safety Report 4542785-X (Version None)
Quarter: 2004Q4

REPORT INFORMATION
  Report Type: 
  Country: None (occurrence: None)
  Receive Date: 20041231
  Receipt Date: 20040405
  Transmission Date: 20050328
  Serious: Yes (Hospitalization)
  Sender: FDA-Public Use
  Company Number: PHHO2004JP05140

PATIENT
  Age: 77 Year
  Sex: Male

DRUGS (6)
  1. DIOVAN [Suspect]
     Indication: HYPERTENSION
     Route: 048
     Dates: start: 20021111, end: 20030901
  2. MEVALOTIN [Concomitant]
     Indication: HYPERCHOLESTEROLAEMIA
     Dosage: 10 MG,
     Route: 048
     Dates: start: 20020422, end: 20031209
  3. ASPIRIN [Concomitant]
     Indication: ATHEROSCLEROSIS OBLITERANS
     Dosage: 100 MG,
     Route: 048
     Dates: start: 20020422, end: 20031209
  4. DORNER [Concomitant]
     Indication: ATHEROSCLEROSIS OBLITERANS
     Dosage: 60 UG,
     Route: 048
     Dates: start: 20020422, end: 20030901
  5. RENIVACE [Concomitant]
     Indication: HYPERTENSION
     Dosage: 10 MG,
     Route: 048
     Dates: start: 20020422, end: 20030901
  6. FAMOTIDINE [Concomitant]
     Indication: GASTRITIS
     Dosage: 10 MG,
     Route: 048
     Dates: start: 20020422, end: 20031209

REACTIONS (7)
  - ANOREXIA [None]
  - COLON CANCER [None]
  - COLON OPERATION [None]
  - DIABETIC NEUROPATHY [None]
  - IMPAIRED GASTRIC EMPTYING [None]
  - ORTHOSTATIC HYPOTENSION [None]
  - WEIGHT DECREASED [None]
